FAERS Safety Report 6656405-1 (Version None)
Quarter: 2010Q1

REPORT INFORMATION
  Report Type: 
  Country: None (occurrence: None)
  Receive Date: 20100329
  Receipt Date: 20100322
  Transmission Date: 20100710
  Serious: Yes (Death, Hospitalization)
  Sender: FDA-Public Use
  Company Number: CA-ROCHE-692857

PATIENT
  Sex: Male

DRUGS (3)
  1. BEVACIZUMAB [Suspect]
     Indication: GLIOBLASTOMA
     Route: 042
     Dates: start: 20091201, end: 20100209
  2. KEPPRA [Concomitant]
     Dates: end: 20100312
  3. DECADRON [Concomitant]
     Dates: end: 20100312

REACTIONS (2)
  - HOSPITALISATION [None]
  - MALIGNANT NEOPLASM PROGRESSION [None]
